FAERS Safety Report 12957236 (Version 1)
Quarter: 2016Q4

REPORT INFORMATION
  Report Type: Spontaneous
  Country: US (occurrence: US)
  Receive Date: 20161118
  Receipt Date: 20161118
  Transmission Date: 20170207
  Serious: Yes (Life-Threatening, Hospitalization, Other)
  Sender: FDA-Public Use
  Company Number: US-PFIZER INC-2016535294

PATIENT
  Age: 13 Year
  Sex: Female

DRUGS (2)
  1. CHLORPHENIRAMINE/DEXTROMETHORPHAN [Concomitant]
     Active Substance: CHLORPHENIRAMINE\DEXTROMETHORPHAN
     Dosage: 5 DF, UNK
  2. BENZONATATE. [Suspect]
     Active Substance: BENZONATATE
     Dosage: 40 DF, APPROXIMATELY

REACTIONS (5)
  - Seizure [Unknown]
  - Coma [Unknown]
  - Toxicity to various agents [Unknown]
  - Metabolic acidosis [Unknown]
  - Intentional overdose [Unknown]
